FAERS Safety Report 19710703 (Version 3)
Quarter: 2021Q3

REPORT INFORMATION
  Report Type: Spontaneous
  Country: CZ (occurrence: CZ)
  Receive Date: 20210817
  Receipt Date: 20210902
  Transmission Date: 20211014
  Serious: Yes (Hospitalization, Other)
  Sender: FDA-Public Use
  Company Number: CZ-ALLERGAN-2128479US

PATIENT
  Sex: Female

DRUGS (10)
  1. OLANZAPINE. [Suspect]
     Active Substance: OLANZAPINE
     Indication: MULTIMORBIDITY
     Dosage: 20 MILLIGRAM
     Route: 065
  2. QUETIAPINE. [Suspect]
     Active Substance: QUETIAPINE
     Indication: ATTENTION DEFICIT HYPERACTIVITY DISORDER
     Dosage: QUETIAPINE PROLONG 400 MG
     Route: 065
  3. ESCITALOPRAM OXALATE ? BP [Suspect]
     Active Substance: ESCITALOPRAM OXALATE
     Indication: ATTENTION DEFICIT HYPERACTIVITY DISORDER
  4. ARIPIPRAZOLE. [Suspect]
     Active Substance: ARIPIPRAZOLE
     Indication: MULTIMORBIDITY
     Dosage: 15 MG, QD
     Route: 065
  5. ARIPIPRAZOLE. [Suspect]
     Active Substance: ARIPIPRAZOLE
     Indication: ATTENTION DEFICIT HYPERACTIVITY DISORDER
  6. AGOMELATINE [Suspect]
     Active Substance: AGOMELATINE
     Indication: AFFECTIVE DISORDER
     Dosage: DOSES 25?50 MG
     Route: 065
  7. PREGABALIN. [Suspect]
     Active Substance: PREGABALIN
     Indication: PRODUCT USED FOR UNKNOWN INDICATION
     Dosage: 150 MG / DAY
     Route: 065
  8. OLANZAPINE. [Suspect]
     Active Substance: OLANZAPINE
     Indication: ATTENTION DEFICIT HYPERACTIVITY DISORDER
  9. ESCITALOPRAM OXALATE ? BP [Suspect]
     Active Substance: ESCITALOPRAM OXALATE
     Indication: MULTIMORBIDITY
     Dosage: 10 MILLIGRAM
     Route: 065
  10. QUETIAPINE. [Suspect]
     Active Substance: QUETIAPINE
     Indication: MULTIMORBIDITY

REACTIONS (20)
  - Delusion [Recovered/Resolved]
  - Hallucination, auditory [Recovered/Resolved]
  - Type 2 diabetes mellitus [Recovering/Resolving]
  - Asthenia [Recovered/Resolved]
  - Schizoaffective disorder [Unknown]
  - Sleep deficit [Recovered/Resolved]
  - Behaviour disorder [Recovered/Resolved]
  - Sedation [Unknown]
  - Akathisia [Recovered/Resolved]
  - Euphoric mood [Recovered/Resolved]
  - Dysphoria [Recovered/Resolved]
  - Weight increased [Recovering/Resolving]
  - Therapeutic product effect incomplete [Unknown]
  - Central obesity [Recovering/Resolving]
  - Somnolence [Recovered/Resolved]
  - Product use in unapproved indication [Unknown]
  - Psychiatric decompensation [Unknown]
  - Drug ineffective [Unknown]
  - Irritability [Recovered/Resolved]
  - Accelerated hypertension [Recovered/Resolved]
